FAERS Safety Report 14845569 (Version 2)
Quarter: 2018Q2

REPORT INFORMATION
  Report Type: Spontaneous
  Country: US (occurrence: US)
  Receive Date: 20180504
  Receipt Date: 20180524
  Transmission Date: 20180711
  Serious: No
  Sender: FDA-Public Use
  Company Number: US-PFIZER INC-2018180548

PATIENT
  Age: 3 Year
  Sex: Female

DRUGS (2)
  1. EUCRISA [Suspect]
     Active Substance: CRISABOROLE
     Indication: DERMATITIS ATOPIC
     Dosage: UNK, 1X/DAY
     Route: 061
     Dates: start: 20180428, end: 20180428
  2. EUCRISA [Suspect]
     Active Substance: CRISABOROLE
     Indication: ECZEMA

REACTIONS (2)
  - Application site pain [Unknown]
  - Skin irritation [Recovered/Resolved]

NARRATIVE: CASE EVENT DATE: 20180428
